FAERS Safety Report 7809771-5 (Version None)
Quarter: 2011Q4

REPORT INFORMATION
  Report Type: 
  Country: None (occurrence: None)
  Receive Date: 20111012
  Receipt Date: 20111004
  Transmission Date: 20120403
  Serious: Yes (Other)
  Sender: FDA-Public Use
  Company Number: PHHY2011US83420

PATIENT
  Age: 69 Year
  Sex: Female

DRUGS (6)
  1. REQUIP [Concomitant]
     Dosage: UNK UKN, UNK
  2. ZELAPAR [Concomitant]
     Dosage: UNK UKN, UNK
  3. STALEVO 100 [Suspect]
     Dosage: UNK UKN, UNK
     Route: 048
     Dates: start: 20110918
  4. STALEVO 100 [Suspect]
     Dosage: UNK UKN, UNK
     Dates: start: 20110913, end: 20110918
  5. STALEVO 100 [Suspect]
     Indication: PARKINSON'S DISEASE
     Dosage: 1 DF, QD
     Route: 048
  6. VITAMIN D [Concomitant]
     Dosage: 50000 IU, UNK

REACTIONS (8)
  - PELVIC FRACTURE [None]
  - MOBILITY DECREASED [None]
  - MUSCLE RIGIDITY [None]
  - GAIT DISTURBANCE [None]
  - PARKINSON'S DISEASE [None]
  - TREMOR [None]
  - CHROMATURIA [None]
  - DYSSTASIA [None]
